FAERS Safety Report 4465382-3 (Version None)
Quarter: 2004Q4

REPORT INFORMATION
  Report Type: 
  Country: None (occurrence: None)
  Receive Date: 20041004
  Receipt Date: 20020115
  Transmission Date: 20050328
  Serious: Yes (Death)
  Sender: FDA-Public Use
  Company Number: US-ROCHE-305083

PATIENT
  Age: 16 Year
  Sex: Male
  Weight: 56.7 kg

DRUGS (9)
  1. ACCUTANE [Suspect]
     Indication: ACNE
     Route: 048
     Dates: start: 20000515, end: 20000713
  2. ACCUTANE [Suspect]
     Route: 048
     Dates: start: 20000713, end: 20000821
  3. ACCUTANE [Suspect]
     Route: 048
     Dates: start: 20000821, end: 20001002
  4. ACCUTANE [Suspect]
     Route: 048
     Dates: start: 20001002, end: 20001218
  5. ACCUTANE [Suspect]
     Route: 048
     Dates: start: 20001218, end: 20010115
  6. ACCUTANE [Suspect]
     Route: 048
     Dates: start: 20010628
  7. CARMOL [Concomitant]
     Dates: start: 20001219
  8. ALLEGRA [Concomitant]
     Route: 048
     Dates: start: 20011106
  9. LEVAQUIN [Concomitant]
     Route: 048
     Dates: start: 20011017

REACTIONS (18)
  - AFFECT LABILITY [None]
  - AGGRESSION [None]
  - ARTHRALGIA [None]
  - BACK PAIN [None]
  - COMPLETED SUICIDE [None]
  - DEPRESSION [None]
  - DIPLOPIA [None]
  - DIZZINESS [None]
  - DYSTHYMIC DISORDER [None]
  - FATIGUE [None]
  - HEADACHE [None]
  - INJURY ASPHYXIATION [None]
  - MEDICATION ERROR [None]
  - NAUSEA [None]
  - PHOTOSENSITIVITY REACTION [None]
  - PROSTATITIS [None]
  - SINUSITIS [None]
  - SUICIDAL IDEATION [None]
